FAERS Safety Report 22657392 (Version 4)
Quarter: 2024Q2

REPORT INFORMATION
  Report Type: Spontaneous
  Country: ES (occurrence: ES)
  Receive Date: 20230630
  Receipt Date: 20240401
  Transmission Date: 20240716
  Serious: Yes (Life-Threatening, Hospitalization, Other)
  Sender: FDA-Public Use
  Company Number: ES-AUROBINDO-AUR-APL-2023-044239

PATIENT
  Age: 9 Year
  Sex: Male

DRUGS (6)
  1. LEVETIRACETAM [Suspect]
     Active Substance: LEVETIRACETAM
     Indication: Status epilepticus
     Dosage: 10 MILLIGRAM/KILOGRAM
     Route: 065
     Dates: start: 201909
  2. VALPROATE SODIUM [Suspect]
     Active Substance: VALPROATE SODIUM
     Indication: Status epilepticus
     Dosage: 20 MILLIGRAM/KILOGRAM
     Route: 065
     Dates: start: 201909
  3. PHENYTOIN [Suspect]
     Active Substance: PHENYTOIN
     Indication: Status epilepticus
     Dosage: 20 MILLIGRAM/KILOGRAM
     Route: 065
     Dates: start: 201909
  4. MIDAZOLAM [Concomitant]
     Active Substance: MIDAZOLAM
     Indication: Status epilepticus
     Dosage: UNK (0.1 MG/KG/H)
     Route: 065
  5. MIDAZOLAM [Concomitant]
     Active Substance: MIDAZOLAM
     Dosage: 0.1 MILLIGRAM/KILOGRAM
     Route: 040
  6. MIDAZOLAM [Concomitant]
     Active Substance: MIDAZOLAM
     Dosage: 0.2 MILLIGRAM/KILOGRAM
     Route: 042

REACTIONS (1)
  - Drug ineffective [Unknown]
